FAERS Safety Report 13274819 (Version 2)
Quarter: 2017Q1

REPORT INFORMATION
  Report Type: Spontaneous
  Country: ES (occurrence: ES)
  Receive Date: 20170227
  Receipt Date: 20170309
  Transmission Date: 20170428
  Serious: Yes (Life-Threatening, Hospitalization)
  Sender: FDA-Public Use
  Company Number: ES-PFIZER INC-2017078801

PATIENT
  Age: 33 Year
  Sex: Male

DRUGS (1)
  1. ALTELLUS [Suspect]
     Active Substance: EPINEPHRINE
     Dosage: 0.3 MG, UNK

REACTIONS (3)
  - Drug dose omission [Unknown]
  - Device failure [Unknown]
  - Product quality issue [Unknown]
